FAERS Safety Report 12579871 (Version 6)
Quarter: 2017Q1

REPORT INFORMATION
  Report Type: Report from Study
  Country: JP (occurrence: JP)
  Receive Date: 20160721
  Receipt Date: 20170323
  Transmission Date: 20170428
  Serious: Yes (Death, Life-Threatening, Hospitalization, Other)
  Sender: FDA-Public Use
  Company Number: PHJP2016JP019647

PATIENT
  Age: 79 Year
  Sex: Male
  Weight: 67 kg

DRUGS (5)
  1. ACTOS [Concomitant]
     Active Substance: PIOGLITAZONE HYDROCHLORIDE
     Indication: DIABETES MELLITUS
     Dosage: 15 MG, QD
     Route: 048
  2. ATELEC [Concomitant]
     Active Substance: CILNIDIPINE
     Indication: HYPERTENSION
     Dosage: 10 MG, QD
     Route: 048
  3. AMLODIN [Concomitant]
     Active Substance: AMLODIPINE BESYLATE
     Indication: HYPERTENSION
     Dosage: UNK
     Route: 048
  4. PAZOPANIB [Suspect]
     Active Substance: PAZOPANIB
     Indication: RENAL CELL CARCINOMA STAGE III
     Dosage: 400 MG, QD
     Route: 048
     Dates: start: 20160407, end: 20160703
  5. AMARYL [Concomitant]
     Active Substance: GLIMEPIRIDE
     Indication: DIABETES MELLITUS
     Dosage: 1 MG, TID
     Route: 048

REACTIONS (23)
  - Platelet count decreased [Fatal]
  - Malignant neoplasm progression [Fatal]
  - Fatigue [Not Recovered/Not Resolved]
  - Petechiae [Fatal]
  - Multiple organ dysfunction syndrome [Fatal]
  - Diarrhoea [Fatal]
  - Dyspnoea [Fatal]
  - Cerebral infarction [Fatal]
  - Dysarthria [Fatal]
  - Purpura [Fatal]
  - Anaemia [Fatal]
  - Bacterial infection [Fatal]
  - Hepatic function abnormal [Recovering/Resolving]
  - Platelet count decreased [Recovered/Resolved]
  - Disseminated intravascular coagulation [Fatal]
  - Gastrointestinal haemorrhage [Fatal]
  - Thrombocytopenic purpura [Unknown]
  - Pyrexia [Fatal]
  - Pneumonia bacterial [Fatal]
  - Ascites [Unknown]
  - Urinary incontinence [Fatal]
  - Interstitial lung disease [Fatal]
  - Diarrhoea [Recovered/Resolved]

NARRATIVE: CASE EVENT DATE: 20160407
